FAERS Safety Report 9328778 (Version 4)
Quarter: 2013Q3

REPORT INFORMATION
  Report Type: Spontaneous
  Country: IT (occurrence: IT)
  Receive Date: 20130604
  Receipt Date: 20130722
  Transmission Date: 20140515
  Serious: Yes (Hospitalization)
  Sender: FDA-Public Use
  Company Number: IT-UCBSA-087097

PATIENT
  Age: 71 Year
  Sex: Male

DRUGS (4)
  1. GLYCERYL TRINITRATE [Suspect]
     Route: 062
     Dates: start: 20120107
  2. APROVEL [Suspect]
     Dosage: DOSE: 150MG, 28 TABLETS
     Route: 048
     Dates: start: 20120107
  3. NORVASC [Suspect]
     Indication: HYPERTENSION
     Dosage: DOSE: 10MG, 14 TABLETS
     Route: 048
     Dates: start: 20120107, end: 20130106
  4. NEBIVOLOL HYDROCHLORIDE [Suspect]
     Route: 048
     Dates: start: 20120107

REACTIONS (2)
  - Hypotension [Recovering/Resolving]
  - Presyncope [Recovering/Resolving]
